FAERS Safety Report 20652473 (Version 1)
Quarter: 2022Q1

REPORT INFORMATION
  Report Type: Spontaneous
  Country: JP (occurrence: JP)
  Receive Date: 20220330
  Receipt Date: 20220330
  Transmission Date: 20220423
  Serious: Yes (Hospitalization)
  Sender: FDA-Public Use
  Company Number: JP-NOVARTISPH-NVSJ2022JP005165

PATIENT
  Age: 10 Year
  Sex: Female

DRUGS (2)
  1. AMOXICILLIN [Suspect]
     Active Substance: AMOXICILLIN
     Indication: Parotid gland enlargement
     Route: 065
  2. AMOXICILLIN [Suspect]
     Active Substance: AMOXICILLIN
     Indication: Salivary gland pain

REACTIONS (3)
  - Parotid gland enlargement [Recovering/Resolving]
  - Salivary gland pain [Recovering/Resolving]
  - Disease progression [Recovering/Resolving]
